FAERS Safety Report 8013785-2 (Version None)
Quarter: 2011Q4

REPORT INFORMATION
  Report Type: 
  Country: None (occurrence: None)
  Receive Date: 20111229
  Receipt Date: 20111223
  Transmission Date: 20120403
  Serious: Yes (Hospitalization, Other)
  Sender: FDA-Public Use
  Company Number: IN-PFIZER INC-2011313593

PATIENT
  Age: 65 Year
  Sex: Female

DRUGS (1)
  1. SUTENT [Suspect]
     Indication: METASTATIC RENAL CELL CARCINOMA
     Dosage: 37.5 MG, 1X/DAY
     Route: 048
     Dates: start: 20110905

REACTIONS (10)
  - DEHYDRATION [None]
  - ULCER [None]
  - DIARRHOEA [None]
  - SKIN DISCOLOURATION [None]
  - INTESTINAL ULCER [None]
  - BLOOD POTASSIUM INCREASED [None]
  - BLOOD POTASSIUM DECREASED [None]
  - MOUTH ULCERATION [None]
  - DECREASED APPETITE [None]
  - GASTRITIS [None]
